FAERS Safety Report 25163543 (Version 1)
Quarter: 2025Q2

REPORT INFORMATION
  Report Type: Report from Study
  Country: US (occurrence: US)
  Receive Date: 20250405
  Receipt Date: 20250405
  Transmission Date: 20250716
  Serious: Yes (Other)
  Sender: ABBVIE
  Company Number: US-ABBVIE-6210500

PATIENT

DRUGS (2)
  1. HUMIRA [Suspect]
     Active Substance: ADALIMUMAB
     Indication: Psoriatic arthropathy
     Route: 058
  2. Zicam [Concomitant]
     Indication: Product used for unknown indication

REACTIONS (8)
  - Hip arthroplasty [Unknown]
  - Sinus headache [Unknown]
  - Hand deformity [Unknown]
  - Sinus congestion [Unknown]
  - Toothache [Unknown]
  - Insomnia [Unknown]
  - Arthritis [Unknown]
  - Arthralgia [Unknown]

NARRATIVE: CASE EVENT DATE: 20250327
